FAERS Safety Report 6860628-6 (Version None)
Quarter: 2010Q3

REPORT INFORMATION
  Report Type: 
  Country: None (occurrence: None)
  Receive Date: 20100720
  Receipt Date: 20100511
  Transmission Date: 20110219
  Serious: Yes (Death, Other)
  Sender: FDA-Public Use
  Company Number: IE-ROCHE-83462

PATIENT
  Sex: Male
  Weight: 65 kg

DRUGS (4)
  1. ISOTRETINOIN [Suspect]
     Indication: ACNE
     Route: 048
     Dates: start: 19970222, end: 19970615
  2. FLIXOTIDE [Concomitant]
     Indication: ASTHMA
     Dates: end: 19970605
  3. CLINDAMYCIN [Concomitant]
     Indication: ACNE
     Route: 061
     Dates: start: 19960101
  4. MINOCIN [Concomitant]
     Indication: ACNE
     Dates: start: 19960101

REACTIONS (12)
  - ABNORMAL BEHAVIOUR [None]
  - CHEILITIS [None]
  - COMPLETED SUICIDE [None]
  - DECREASED APPETITE [None]
  - DEPRESSION [None]
  - DRY MOUTH [None]
  - DRY SKIN [None]
  - FATIGUE [None]
  - LIP DRY [None]
  - PERSONALITY CHANGE [None]
  - PHOTOPHOBIA [None]
  - SKIN EXFOLIATION [None]
